FAERS Safety Report 7609031-1 (Version None)
Quarter: 2011Q3

REPORT INFORMATION
  Report Type: 
  Country: None (occurrence: None)
  Receive Date: 20110714
  Receipt Date: 20110705
  Transmission Date: 20111222
  Serious: Yes (Other)
  Sender: FDA-Public Use
  Company Number: CR-ROCHE-787683

PATIENT
  Age: 74 Year
  Sex: Male

DRUGS (8)
  1. OXALIPLATIN [Concomitant]
     Indication: COLORECTAL CANCER
     Route: 042
     Dates: start: 20100101, end: 20100101
  2. CIMETIDINE [Concomitant]
     Indication: PREMEDICATION
     Dosage: STOP DATE: ONE DOSE
     Route: 042
     Dates: start: 20110613
  3. KYTRIL [Concomitant]
     Indication: PREMEDICATION
     Dosage: STOP DATE: ONE DOSE
     Route: 042
     Dates: start: 20110613
  4. IRINOTECAN HCL [Suspect]
     Route: 042
     Dates: start: 20110613
  5. DEXAMETHASONE [Concomitant]
     Indication: PREMEDICATION
     Dosage: STOP DATE: ONE DOSE
     Route: 042
     Dates: start: 20110613
  6. XELODA [Concomitant]
     Indication: COLORECTAL CANCER
     Dosage: DOSE:3 TAB AT MORNING AND 2 AT NIGHT.FREQUENCY:DAILY WITH ONE WEEK OFF(DURING OXALIPLATIN TREATMENT)
     Route: 048
     Dates: start: 20100101, end: 20100101
  7. AVASTIN [Suspect]
     Indication: COLORECTAL CANCER
     Route: 042
     Dates: start: 20110613
  8. LEUCOVORIN CALCIUM [Suspect]
     Route: 042
     Dates: start: 20110613

REACTIONS (4)
  - DISORIENTATION [None]
  - MUSCULOSKELETAL STIFFNESS [None]
  - ASTHENIA [None]
  - DIARRHOEA [None]
